FAERS Safety Report 18818429 (Version 1)
Quarter: 2021Q1

REPORT INFORMATION
  Report Type: Spontaneous
  Country: None (occurrence: US)
  Receive Date: 20210201
  Receipt Date: 20210201
  Transmission Date: 20210419
  Serious: No
  Sender: FDA-Public Use
  Company Number: US-SMARTPRACTICE DENMARK APS-2106120

PATIENT
  Sex: Female

DRUGS (1)
  1. T.R.U.E. TEST (THIN?LAYER RAPID USE EPICUTANEOUS PATCH TEST) [Suspect]
     Active Substance: ALLERGEN PATCH TEST
     Route: 061
     Dates: start: 201909, end: 201909

REACTIONS (2)
  - Administration site reaction [Unknown]
  - Erythema [Unknown]

NARRATIVE: CASE EVENT DATE: 201909
